FAERS Safety Report 24659372 (Version 1)
Quarter: 2024Q4

REPORT INFORMATION
  Report Type: Spontaneous
  Country: FR (occurrence: FR)
  Receive Date: 20241125
  Receipt Date: 20241125
  Transmission Date: 20250114
  Serious: Yes (Death)
  Sender: DR REDDYS
  Company Number: None

PATIENT
  Age: 92 Year
  Sex: Female

DRUGS (3)
  1. DAPTOMYCIN [Suspect]
     Active Substance: DAPTOMYCIN
     Indication: Infection
     Route: 042
     Dates: start: 20240103, end: 20240108
  2. DAPTOMYCIN [Suspect]
     Active Substance: DAPTOMYCIN
     Route: 042
     Dates: start: 20240205, end: 20240211
  3. CEFTAZIDIME [Suspect]
     Active Substance: CEFTAZIDIME
     Indication: Infection
     Route: 042
     Dates: start: 20240205, end: 20240211

REACTIONS (1)
  - Hepatic cytolysis [Fatal]

NARRATIVE: CASE EVENT DATE: 20240208
